FAERS Safety Report 22657976 (Version 1)
Quarter: 2023Q2

REPORT INFORMATION
  Report Type: Spontaneous
  Country: US (occurrence: US)
  Receive Date: 20230630
  Receipt Date: 20230630
  Transmission Date: 20230722
  Serious: Yes (Other)
  Sender: FDA-Public Use
  Company Number: US-AUROBINDO-AUR-APL-2023-044275

PATIENT
  Age: 44 Year
  Sex: Male

DRUGS (6)
  1. DOCETAXEL [Suspect]
     Active Substance: DOCETAXEL
     Indication: Neoplasm malignant
     Dosage: UNK
     Route: 065
  2. CISPLATIN [Suspect]
     Active Substance: CISPLATIN
     Indication: Neoplasm malignant
     Dosage: UNK
     Route: 065
  3. ETOPOSIDE [Suspect]
     Active Substance: ETOPOSIDE
     Indication: Neoplasm malignant
     Dosage: UNK
     Route: 065
  4. PEMBROLIZUMAB [Suspect]
     Active Substance: PEMBROLIZUMAB
     Indication: Neoplasm malignant
     Dosage: UNK
     Route: 065
  5. NIVOLUMAB [Suspect]
     Active Substance: NIVOLUMAB
     Indication: Neoplasm malignant
     Dosage: UNK
     Route: 065
  6. RAMUCIRUMAB [Concomitant]
     Active Substance: RAMUCIRUMAB
     Indication: Neoplasm malignant
     Dosage: UNK
     Route: 065

REACTIONS (1)
  - Drug ineffective [Unknown]
